FAERS Safety Report 12189275 (Version 1)
Quarter: 2016Q1

REPORT INFORMATION
  Report Type: Report from Study
  Country: DE (occurrence: DE)
  Receive Date: 20160317
  Receipt Date: 20160317
  Transmission Date: 20160526
  Serious: Yes (Death, Life-Threatening, Hospitalization, Disabling, Other)
  Sender: FDA-Public Use
  Company Number: DE-ASTRAZENECA-2016SE28316

PATIENT
  Age: 28557 Day
  Sex: Male

DRUGS (10)
  1. MOXONIDINE [Concomitant]
     Active Substance: MOXONIDINE
  2. HYDROCHLOROTHIAZIDE. [Concomitant]
     Active Substance: HYDROCHLOROTHIAZIDE
  3. VALSARTAN. [Concomitant]
     Active Substance: VALSARTAN
  4. NEBIVOLOL. [Concomitant]
     Active Substance: NEBIVOLOL
  5. ACETYLSALICYLIC ACID [Suspect]
     Active Substance: ASPIRIN
     Indication: THROMBOSIS PROPHYLAXIS
     Dosage: NON-AZ PRODUCT (MAINTENANCE THERAPY)
     Route: 048
  6. NEPRESOL [Concomitant]
     Active Substance: DIHYDRALAZINE SULFATE
  7. LERCANIDIPINE [Concomitant]
     Active Substance: LERCANIDIPINE
  8. ALLOPURINOL. [Concomitant]
     Active Substance: ALLOPURINOL
  9. TICAGRELOR [Suspect]
     Active Substance: TICAGRELOR
     Indication: THROMBOSIS PROPHYLAXIS
     Route: 048
     Dates: start: 20150227, end: 20160308
  10. FLUVASTATIN [Concomitant]
     Active Substance: FLUVASTATIN SODIUM

REACTIONS (5)
  - Cardiogenic shock [Fatal]
  - Acute myocardial infarction [Not Recovered/Not Resolved]
  - Hypotonia [Not Recovered/Not Resolved]
  - Bradycardia [Not Recovered/Not Resolved]
  - Coronary artery restenosis [Not Recovered/Not Resolved]

NARRATIVE: CASE EVENT DATE: 20160309
